FAERS Safety Report 24303379 (Version 1)
Quarter: 2024Q3

REPORT INFORMATION
  Report Type: Spontaneous
  Country: US (occurrence: None)
  Receive Date: 20240910
  Receipt Date: 20240910
  Transmission Date: 20241016
  Serious: Yes (Hospitalization)
  Sender: Public
  Company Number: None

PATIENT
  Sex: Male
  Weight: 70.3 kg

DRUGS (1)
  1. LEVOCARNITINE [Suspect]
     Active Substance: LEVOCARNITINE
     Dates: end: 20230830

REACTIONS (1)
  - Colitis [None]

NARRATIVE: CASE EVENT DATE: 20240830
